FAERS Safety Report 13685147 (Version 1)
Quarter: 2017Q2

REPORT INFORMATION
  Report Type: Spontaneous
  Country: US (occurrence: US)
  Receive Date: 20170623
  Receipt Date: 20170623
  Transmission Date: 20170830
  Serious: No
  Sender: FDA-Public Use
  Company Number: US-BAUSCH-BL-2016-027917

PATIENT
  Age: 50 Year
  Sex: Female
  Weight: 70.37 kg

DRUGS (7)
  1. SOLODYN [Suspect]
     Active Substance: MINOCYCLINE HYDROCHLORIDE
     Indication: ACNE
     Route: 048
     Dates: start: 201609
  2. RETIN-A [Suspect]
     Active Substance: TRETINOIN
     Indication: DERMATITIS
  3. MINOCYCLINE [Suspect]
     Active Substance: MINOCYCLINE\MINOCYCLINE HYDROCHLORIDE
     Indication: ACNE
  4. SOLODYN [Suspect]
     Active Substance: MINOCYCLINE HYDROCHLORIDE
     Indication: DERMATITIS
     Dosage: EVERY OTHER DAY
     Route: 048
     Dates: start: 201611, end: 20161111
  5. RETIN-A [Suspect]
     Active Substance: TRETINOIN
     Indication: ACNE
     Dosage: APPLIED TO AFFECTED AREAS
     Route: 061
  6. MINOCYCLINE [Suspect]
     Active Substance: MINOCYCLINE\MINOCYCLINE HYDROCHLORIDE
     Indication: ACNE
     Route: 048
  7. CALCITRATE PLUS D [Concomitant]
     Indication: MINERAL SUPPLEMENTATION
     Dosage: EVERY OTHER DAY
     Route: 048

REACTIONS (7)
  - Drug ineffective [Unknown]
  - Decreased appetite [Recovered/Resolved]
  - Confusional state [Recovered/Resolved]
  - Headache [Recovered/Resolved]
  - Fatigue [Unknown]
  - Palpitations [Recovered/Resolved]
  - Psychomotor hyperactivity [Recovered/Resolved]
